FAERS Safety Report 9454221 (Version 1)
Quarter: 2013Q3

REPORT INFORMATION
  Report Type: Spontaneous
  Country: US (occurrence: None)
  Receive Date: 20130807
  Receipt Date: 20130807
  Transmission Date: 20140515
  Serious: Yes (Other)
  Sender: FDA-Public Use
  Company Number: 2013P1013453

PATIENT
  Age: 34 Year
  Sex: Female
  Weight: 63.5 kg

DRUGS (3)
  1. MYORISAN [Suspect]
     Indication: ACNE CYSTIC
     Route: 048
     Dates: start: 20130620, end: 201307
  2. EFFEXOR [Concomitant]
  3. YASMIN [Concomitant]

REACTIONS (4)
  - Mood altered [None]
  - Depressed mood [None]
  - Anger [None]
  - Depression [None]
